FAERS Safety Report 9164541 (Version 1)
Quarter: 2013Q1

REPORT INFORMATION
  Report Type: Spontaneous
  Country: FR (occurrence: None)
  Receive Date: 20130226
  Receipt Date: 20130226
  Transmission Date: 20140127
  Serious: Yes (Hospitalization, Other)
  Sender: FDA-Public Use
  Company Number: AUR-APL-2013-01618

PATIENT
  Age: 84 Year
  Sex: Female

DRUGS (9)
  1. SIMVASTATIN (SIMVASTATIN) [Suspect]
     Indication: PRODUCT USED FOR UNKNOWN INDICATION
     Route: 048
     Dates: end: 20130110
  2. LYRICA (PREGABALIN) [Suspect]
     Dosage: 100 MG (50 MG, 2 IN 1 D), ORAL
     Route: 048
     Dates: start: 20130103, end: 20130105
  3. AMITRIPTYLINE HYDROCHLORIDE [Suspect]
     Route: 048
     Dates: start: 20130109, end: 20130111
  4. OXYCONTIN (OXYCODONE HYDROCHLORIDE) [Suspect]
     Dosage: 3 DOSAGE FORMS (1 DOSAGE FORMS, 3 IN 1 D), ORAL
     Route: 048
     Dates: start: 20130107
  5. DOLIPRANE (PARACETAMOL) [Suspect]
     Route: 048
     Dates: end: 20130110
  6. CIPRALAN (CIBENZOLINE SUCCINATE) [Concomitant]
  7. LUMIREXLAN (METHOCARBAMOL) [Concomitant]
  8. VERSATIS (LIDOCAINE) [Concomitant]
  9. OXYNORM (OXYCODONE HYDROCHLORIDE) [Concomitant]

REACTIONS (1)
  - Hepatocellular injury [None]
